FAERS Safety Report 8692169 (Version 6)
Quarter: 2013Q1

REPORT INFORMATION
  Report Type: Spontaneous
  Country: US (occurrence: US)
  Receive Date: 20120730
  Receipt Date: 20130123
  Transmission Date: 20140127
  Serious: No
  Sender: FDA-Public Use
  Company Number: US-PFIZER INC-2012181854

PATIENT
  Age: 62 Year
  Sex: Male

DRUGS (3)
  1. INLYTA [Suspect]
     Indication: RENAL CELL CARCINOMA
     Dosage: 5 MG, 2X/DAY
     Route: 048
     Dates: start: 2011
  2. INLYTA [Suspect]
     Dosage: 7 MG, 2X/DAY
     Route: 048
     Dates: start: 201207
  3. PERCOCET [Suspect]
     Dosage: UNK

REACTIONS (9)
  - Dysphonia [Not Recovered/Not Resolved]
  - Constipation [Recovered/Resolved]
  - Hypertension [Unknown]
  - Hyperkeratosis [Unknown]
  - Dry throat [Unknown]
  - Dry mouth [Recovering/Resolving]
  - Thirst [Recovering/Resolving]
  - Asthenia [Recovering/Resolving]
  - Dry skin [Unknown]
